FAERS Safety Report 5929491-1 (Version None)
Quarter: 2008Q4

REPORT INFORMATION
  Report Type: 
  Country: None (occurrence: None)
  Receive Date: 20081024
  Receipt Date: 20081017
  Transmission Date: 20090506
  Serious: Yes (Other)
  Sender: FDA-Public Use
  Company Number: A0736081B

PATIENT
  Age: 71 Year
  Sex: Female
  Weight: 71 kg

DRUGS (7)
  1. LAPATINIB [Suspect]
     Indication: COLORECTAL CANCER
     Dosage: 750MG PER DAY
     Route: 048
     Dates: start: 20080620
  2. OXALIPLATIN [Suspect]
     Indication: COLORECTAL CANCER
     Dosage: 234MG SINGLE DOSE
     Route: 042
     Dates: start: 20080620
  3. CAPECITABINE [Suspect]
     Indication: COLORECTAL CANCER
     Dosage: 1500MG CYCLIC
     Route: 048
     Dates: start: 20080620
  4. ZYRTEC [Concomitant]
     Indication: MULTIPLE ALLERGIES
     Route: 048
  5. LISINOPRIL [Concomitant]
     Indication: HYPERTENSION
     Route: 048
  6. RANITIDINE [Concomitant]
     Dosage: 150MG PER DAY
     Route: 048
  7. MYLANTA [Concomitant]
     Route: 048

REACTIONS (2)
  - DIARRHOEA [None]
  - HYPOKALAEMIA [None]
